FAERS Safety Report 22268042 (Version 3)
Quarter: 2023Q2

REPORT INFORMATION
  Report Type: Report from Study
  Country: US (occurrence: US)
  Receive Date: 20230430
  Receipt Date: 20230630
  Transmission Date: 20230722
  Serious: No
  Sender: FDA-Public Use
  Company Number: US-002147023-NVSC2023US096367

PATIENT
  Sex: Female
  Weight: 50.34 kg

DRUGS (1)
  1. ILARIS [Suspect]
     Active Substance: CANAKINUMAB
     Indication: Still^s disease
     Dosage: 225 MG, QMO
     Route: 030
     Dates: end: 20230317

REACTIONS (2)
  - Pain [Unknown]
  - Inappropriate schedule of product discontinuation [Unknown]
